FAERS Safety Report 14522391 (Version 2)
Quarter: 2018Q2

REPORT INFORMATION
  Report Type: Report from Study
  Country: US (occurrence: US)
  Receive Date: 20180212
  Receipt Date: 20180627
  Transmission Date: 20180711
  Serious: Yes (Hospitalization)
  Sender: FDA-Public Use
  Company Number: US-ACTELION-A-US2018-167298

PATIENT
  Age: 72 Year
  Sex: Female

DRUGS (3)
  1. TRACLEER [Suspect]
     Active Substance: BOSENTAN
     Indication: PULMONARY ARTERIAL HYPERTENSION
     Dosage: 125 MG, BID
     Route: 048
     Dates: start: 20141119
  2. ERLOTINIB [Concomitant]
     Active Substance: ERLOTINIB
     Indication: LUNG NEOPLASM MALIGNANT
  3. OXYGEN. [Concomitant]
     Active Substance: OXYGEN

REACTIONS (9)
  - Fall [Unknown]
  - Asthenia [Unknown]
  - Gastrointestinal haemorrhage [Unknown]
  - Pelvic fracture [Unknown]
  - Anaemia [Unknown]
  - Transfusion [Unknown]
  - Haematocrit decreased [Unknown]
  - Haemoglobin decreased [Unknown]
  - Pancytopenia [Unknown]

NARRATIVE: CASE EVENT DATE: 20180102
